FAERS Safety Report 9701682 (Version 1)
Quarter: 2013Q4

REPORT INFORMATION
  Report Type: Spontaneous
  Country: US (occurrence: US)
  Receive Date: 20131119
  Receipt Date: 20131119
  Transmission Date: 20140711
  Serious: No
  Sender: FDA-Public Use
  Company Number: US-SAVIENT-2013S1000029

PATIENT
  Age: 46 Year
  Sex: Male

DRUGS (5)
  1. KRYSTEXXA [Suspect]
     Indication: GOUT
     Route: 042
     Dates: start: 201304, end: 201304
  2. KRYSTEXXA [Suspect]
     Route: 042
     Dates: start: 2013, end: 2013
  3. COLCRYS [Concomitant]
     Indication: PRODUCT USED FOR UNKNOWN INDICATION
  4. PREDNISONE [Concomitant]
     Indication: PRODUCT USED FOR UNKNOWN INDICATION
  5. BENADRYL [Concomitant]
     Indication: ALLERGY PROPHYLAXIS

REACTIONS (2)
  - Gout [Recovered/Resolved]
  - Therapeutic response decreased [Not Recovered/Not Resolved]
